FAERS Safety Report 8328548-8 (Version None)
Quarter: 2012Q2

REPORT INFORMATION
  Report Type: 
  Country: None (occurrence: None)
  Receive Date: 20120502
  Receipt Date: 20100729
  Transmission Date: 20120825
  Serious: No
  Sender: FDA-Public Use
  Company Number: US-TEVA-2010003997

PATIENT
  Sex: Female

DRUGS (1)
  1. NUVIGIL [Suspect]
     Indication: NARCOLEPSY
     Route: 048

REACTIONS (8)
  - DISTURBANCE IN ATTENTION [None]
  - MEMORY IMPAIRMENT [None]
  - ALTERED VISUAL DEPTH PERCEPTION [None]
  - SOMNOLENCE [None]
  - PARAESTHESIA [None]
  - DYSARTHRIA [None]
  - DIZZINESS [None]
  - DIARRHOEA [None]
